FAERS Safety Report 9853224 (Version 1)
Quarter: 2014Q1

REPORT INFORMATION
  Report Type: Spontaneous
  Country: US (occurrence: US)
  Receive Date: 20140129
  Receipt Date: 20140129
  Transmission Date: 20141002
  Serious: Yes (Life-Threatening, Hospitalization)
  Sender: FDA-Public Use
  Company Number: US-B.I. PHARMACEUTICALS,INC./RIDGEFIELD-2014-BI-03102GD

PATIENT
  Age: 18 Month
  Sex: Male

DRUGS (6)
  1. CLONIDINE [Suspect]
     Indication: DERMATITIS DIAPER
     Dosage: 2 MG
     Route: 061
  2. KETAMINE [Suspect]
     Indication: DERMATITIS DIAPER
     Dosage: 100 MG
     Route: 061
  3. GABAPENTIN [Suspect]
     Indication: DERMATITIS DIAPER
     Dosage: 60 MG
     Route: 061
  4. MEFENAMIC ACID [Suspect]
     Indication: DERMATITIS DIAPER
     Dosage: 10 MG
     Route: 061
  5. IMIPRAMINE [Suspect]
     Indication: DERMATITIS DIAPER
     Dosage: 30 MG
     Route: 061
  6. LIDOCAINE [Suspect]
     Indication: DERMATITIS DIAPER
     Dosage: 10 MG
     Route: 061

REACTIONS (7)
  - Respiratory depression [Recovered/Resolved]
  - Unresponsive to stimuli [Recovered/Resolved]
  - Sinus bradycardia [Unknown]
  - Miosis [Unknown]
  - Hypotension [Unknown]
  - Hyporeflexia [Unknown]
  - Accidental exposure to product by child [Unknown]
